FAERS Safety Report 12397978 (Version 2)
Quarter: 2016Q2

REPORT INFORMATION
  Report Type: Spontaneous
  Country: US (occurrence: US)
  Receive Date: 20160524
  Receipt Date: 20160627
  Transmission Date: 20160815
  Serious: Yes (Hospitalization, Other)
  Sender: FDA-Public Use
  Company Number: US-ACTAVIS-2016-10678

PATIENT
  Age: 26 Year
  Sex: Female

DRUGS (3)
  1. BEVACIZUMAB [Suspect]
     Active Substance: BEVACIZUMAB
     Indication: PRIMITIVE NEUROECTODERMAL TUMOUR
     Dosage: UNK, CYCLICAL, 5 CYCLES
     Route: 065
  2. CISPLATIN (UNKNOWN) [Suspect]
     Active Substance: CISPLATIN
     Indication: PRIMITIVE NEUROECTODERMAL TUMOUR
     Dosage: SIX CYCLES
     Route: 065
  3. ETOPOSIDE (WATSON LABORATORIES) [Suspect]
     Active Substance: ETOPOSIDE
     Indication: PRIMITIVE NEUROECTODERMAL TUMOUR
     Dosage: SIX CYCLES
     Route: 065

REACTIONS (3)
  - Neutropenia [Unknown]
  - Vomiting [Unknown]
  - Nausea [Unknown]
